FAERS Safety Report 12154849 (Version 1)
Quarter: 2016Q1

REPORT INFORMATION
  Report Type: Spontaneous
  Country: US (occurrence: None)
  Receive Date: 20160304
  Receipt Date: 20160304
  Transmission Date: 20160526
  Serious: Yes (Hospitalization)
  Sender: FDA-Public Use
  Company Number: None

PATIENT
  Age: 62 Year
  Sex: Female
  Weight: 90 kg

DRUGS (11)
  1. EYLEA [Suspect]
     Active Substance: AFLIBERCEPT
     Indication: DIABETIC RETINAL OEDEMA
     Dosage: .05CC, QMT, IVT?
     Dates: start: 20160129
  2. LOSARTAN. [Concomitant]
     Active Substance: LOSARTAN
  3. GABAPENTIN. [Concomitant]
     Active Substance: GABAPENTIN
  4. PROTONIX [Concomitant]
     Active Substance: PANTOPRAZOLE SODIUM
  5. ASPIRIN. [Concomitant]
     Active Substance: ASPIRIN
  6. IRON [Concomitant]
     Active Substance: IRON
  7. LANTUS [Concomitant]
     Active Substance: INSULIN GLARGINE
  8. POTASSIUM [Concomitant]
     Active Substance: POTASSIUM
  9. SIMVASTATIN. [Concomitant]
     Active Substance: SIMVASTATIN
  10. FUROSEMIDE. [Concomitant]
     Active Substance: FUROSEMIDE
  11. LEVEMIR [Concomitant]
     Active Substance: INSULIN DETEMIR

REACTIONS (10)
  - Muscle twitching [None]
  - Swollen tongue [None]
  - Dyspnoea [None]
  - Respiratory distress [None]
  - Hyperosmolar hyperglycaemic state [None]
  - Anaemia [None]
  - Acute kidney injury [None]
  - Dyskinesia [None]
  - Speech disorder [None]
  - Encephalopathy [None]

NARRATIVE: CASE EVENT DATE: 20160223
